FAERS Safety Report 4493682-X (Version None)
Quarter: 2004Q4

REPORT INFORMATION
  Report Type: 
  Country: None (occurrence: None)
  Receive Date: 20041102
  Receipt Date: 20041019
  Transmission Date: 20050328
  Serious: Yes (Other)
  Sender: FDA-Public Use
  Company Number: US-JNJFOC-20041008231

PATIENT
  Age: 3 Year
  Sex: Male

DRUGS (1)
  1. CHILDREN'S MOTRIN COLD (IBUPROFEN/PSEUDOEPHEDRINE HCL) SUSPENSION [Suspect]

REACTIONS (2)
  - PAIN [None]
  - URINARY RETENTION [None]
